FAERS Safety Report 5817289-4 (Version None)
Quarter: 2008Q3

REPORT INFORMATION
  Report Type: 
  Country: None (occurrence: None)
  Receive Date: 20080722
  Receipt Date: 20080718
  Transmission Date: 20090109
  Serious: Yes (Death)
  Sender: FDA-Public Use
  Company Number: B0523717A

PATIENT
  Age: 78 Year
  Sex: Male

DRUGS (5)
  1. CARVEDILOL [Suspect]
     Indication: HYPERTENSION
     Dosage: 12.5MG PER DAY
     Route: 048
     Dates: start: 20071128, end: 20080128
  2. ALDACTONE [Suspect]
     Indication: HYPERTENSION
     Dates: end: 20080125
  3. ENALAPRIL MALEATE [Suspect]
     Indication: HYPERTENSION
     Dosage: 20MG PER DAY
     Route: 048
     Dates: end: 20080125
  4. FUROSEMIDE [Suspect]
     Indication: HYPERTENSION
     Dosage: 40MG PER DAY
     Route: 048
     Dates: end: 20080125
  5. SINTROM [Concomitant]
     Dates: start: 20080125

REACTIONS (2)
  - DRUG INTERACTION [None]
  - RENAL FAILURE [None]
